FAERS Safety Report 4872012-5 (Version None)
Quarter: 2005Q4

REPORT INFORMATION
  Report Type: 
  Country: None (occurrence: None)
  Receive Date: 20051230
  Receipt Date: 20051222
  Transmission Date: 20060501
  Serious: Yes (Death)
  Sender: FDA-Public Use
  Company Number: 2005S1011736

PATIENT
  Age: 49 Year
  Sex: Male
  Weight: 70.3075 kg

DRUGS (7)
  1. FENTANYL TRANSDERMAL SYSTEM [Suspect]
     Indication: NECK PAIN
     Dosage: 100 MCG/HR; TDER
     Route: 062
     Dates: start: 20050705
  2. FENTANYL TRANSDERMAL SYSTEM [Suspect]
     Indication: SHOULDER PAIN
     Dosage: 100 MCG/HR; TDER
     Route: 062
     Dates: start: 20050705
  3. CHLORDIAZEPOXIDE [Concomitant]
  4. OXYCODONE [Concomitant]
  5. GABAPENTIN [Concomitant]
  6. IBUPROFEN [Concomitant]
  7. PARACETAMOL [Concomitant]

REACTIONS (5)
  - DRUG TOXICITY [None]
  - HYPOVENTILATION [None]
  - LOSS OF CONSCIOUSNESS [None]
  - PULMONARY OEDEMA [None]
  - SNORING [None]
